FAERS Safety Report 7556248-0 (Version None)
Quarter: 2011Q2

REPORT INFORMATION
  Report Type: 
  Country: None (occurrence: None)
  Receive Date: 20110620
  Receipt Date: 20110615
  Transmission Date: 20111010
  Serious: No
  Sender: FDA-Public Use
  Company Number: US-PFIZER INC-2011132374

PATIENT
  Age: 38 Year
  Sex: Female
  Weight: 56.689 kg

DRUGS (1)
  1. RELISTOR [Suspect]
     Dosage: 12 MG, UNK
     Route: 058
     Dates: start: 20110614

REACTIONS (2)
  - NAUSEA [None]
  - FLUSHING [None]
